FAERS Safety Report 16470745 (Version 1)
Quarter: 2019Q2

REPORT INFORMATION
  Report Type: Spontaneous
  Country: US (occurrence: US)
  Receive Date: 20190624
  Receipt Date: 20190624
  Transmission Date: 20190711
  Serious: Yes (Life-Threatening, Hospitalization, Other)
  Sender: FDA-Public Use
  Company Number: US-AMGEN-USASP2019097534

PATIENT
  Sex: Male

DRUGS (2)
  1. PREDNISONE. [Concomitant]
     Active Substance: PREDNISONE
     Indication: REITER^S SYNDROME
     Dosage: 2.5 MG TO 20 MG THEN HE HAD TO TAPER HIS WAY UP AND DOWN, QD
  2. ENBREL [Suspect]
     Active Substance: ETANERCEPT
     Indication: REITER^S SYNDROME
     Dosage: 50 MILLIGRAM
     Route: 065
     Dates: start: 2014

REACTIONS (5)
  - Abscess limb [Recovered/Resolved]
  - Fatigue [Recovering/Resolving]
  - Pulmonary embolism [Unknown]
  - Off label use [Unknown]
  - Reiter^s syndrome [Unknown]

NARRATIVE: CASE EVENT DATE: 2014
